FAERS Safety Report 13982531 (Version 1)
Quarter: 2017Q3

REPORT INFORMATION
  Report Type: Spontaneous
  Country: US (occurrence: None)
  Receive Date: 20170912
  Receipt Date: 20170912
  Transmission Date: 20171128
  Serious: No
  Sender: FDA-Public Use
  Company Number: None

PATIENT
  Age: 86 Year
  Sex: Male

DRUGS (9)
  1. COQ10 [Concomitant]
     Active Substance: UBIDECARENONE
  2. VITAMIN C [Concomitant]
     Active Substance: ASCORBIC ACID
  3. VITAMIN D [Concomitant]
     Active Substance: CHOLECALCIFEROL
  4. METOPROLOL. [Suspect]
     Active Substance: METOPROLOL
     Indication: PRODUCT USED FOR UNKNOWN INDICATION
     Dosage: 2 PILLS TWICE DAILY MOUTH
     Route: 048
     Dates: start: 2015
  5. FISH OIL [Concomitant]
     Active Substance: FISH OIL
  6. AMLODIPINE [Concomitant]
     Active Substance: AMLODIPINE BESYLATE
  7. VITAMIN A AND D [Concomitant]
     Active Substance: LANOLIN\PETROLATUM
  8. LISINOPRIL. [Suspect]
     Active Substance: LISINOPRIL
     Indication: PRODUCT USED FOR UNKNOWN INDICATION
     Dosage: 2 PILLS TWICE DAILY MOUTH
     Route: 048
     Dates: start: 2015
  9. VIT. B. COMPLEX [Concomitant]

REACTIONS (2)
  - Palpitations [None]
  - Product label issue [None]
